FAERS Safety Report 8030118-6 (Version None)
Quarter: 2012Q1

REPORT INFORMATION
  Report Type: 
  Country: None (occurrence: None)
  Receive Date: 20120106
  Receipt Date: 20120106
  Transmission Date: 20120608
  Serious: Yes (Other)
  Sender: FDA-Public Use
  Company Number: None

PATIENT
  Age: 44 Year
  Sex: Female

DRUGS (1)
  1. REBIF [Suspect]
     Indication: MULTIPLE SCLEROSIS
     Dosage: 44MCG TIW SQ
     Route: 058
     Dates: start: 20111013, end: 20120104

REACTIONS (6)
  - WEIGHT INCREASED [None]
  - DEPRESSION [None]
  - ANGER [None]
  - CRYING [None]
  - PERSONALITY CHANGE [None]
  - DEPRESSED MOOD [None]
